FAERS Safety Report 4562969-4 (Version None)
Quarter: 2005Q1

REPORT INFORMATION
  Report Type: 
  Country: None (occurrence: None)
  Receive Date: 20050121
  Receipt Date: 20050106
  Transmission Date: 20050727
  Serious: Yes (Hospitalization)
  Sender: FDA-Public Use
  Company Number: 2005008009

PATIENT
  Age: 72 Year
  Sex: Female
  Weight: 73 kg

DRUGS (4)
  1. CELEBREX [Suspect]
     Indication: ADENOMA BENIGN
     Dosage: 400 MG (200 MG, 2 IN 1 D), ORAL
     Route: 048
     Dates: start: 20011119, end: 20041117
  2. PENTOXIFYLLINE [Concomitant]
  3. NITROGLYCERIN [Concomitant]
  4. VINPOCETINE (VINPOCETINE) [Concomitant]

REACTIONS (2)
  - COLON CANCER [None]
  - METASTASES TO LIVER [None]
